FAERS Safety Report 9286108 (Version 1)
Quarter: 2013Q2

REPORT INFORMATION
  Report Type: Spontaneous
  Country: AU (occurrence: AU)
  Receive Date: 20130513
  Receipt Date: 20130513
  Transmission Date: 20140414
  Serious: Yes (Other)
  Sender: FDA-Public Use
  Company Number: PHHY2013AU045746

PATIENT
  Sex: Male

DRUGS (1)
  1. RITALIN [Suspect]
     Dosage: 10 MG, BID
     Dates: start: 201211

REACTIONS (2)
  - Vasculitis [Not Recovered/Not Resolved]
  - Local swelling [Not Recovered/Not Resolved]
